FAERS Safety Report 16994796 (Version 1)
Quarter: 2019Q4

REPORT INFORMATION
  Report Type: Report from Study
  Country: CA (occurrence: CA)
  Receive Date: 20191105
  Receipt Date: 20191105
  Transmission Date: 20200122
  Serious: Yes (Death, Other)
  Sender: FDA-Public Use
  Company Number: CA-PFIZER INC-2019472044

PATIENT
  Age: 32 Year
  Sex: Male
  Weight: 125 kg

DRUGS (11)
  1. METHYLPREDNISOLONE. [Concomitant]
     Active Substance: METHYLPREDNISOLONE
     Indication: PREMEDICATION
     Dosage: 100 MG, UNK
     Route: 042
  2. FOLIC ACID. [Concomitant]
     Active Substance: FOLIC ACID
  3. RITUXAN [Suspect]
     Active Substance: RITUXIMAB
     Indication: RHEUMATOID ARTHRITIS
     Dosage: 1000 MG, UNK
     Route: 042
  4. RITUXAN [Suspect]
     Active Substance: RITUXIMAB
     Indication: EHLERS-DANLOS SYNDROME
  5. DIPHENHYDRAMINE HCL [Concomitant]
     Active Substance: DIPHENHYDRAMINE HYDROCHLORIDE
     Indication: PREMEDICATION
     Dosage: 50 MG, UNK
     Route: 048
  6. METHOTREXATE. [Concomitant]
     Active Substance: METHOTREXATE
  7. GABAPENTIN. [Suspect]
     Active Substance: GABAPENTIN
     Dosage: EVERY 1 DAY
     Route: 065
  8. ACETAMINOPHEN. [Concomitant]
     Active Substance: ACETAMINOPHEN
     Indication: PREMEDICATION
     Dosage: 650 MG, UNK
     Route: 048
  9. BENADRYL [Concomitant]
     Active Substance: DIPHENHYDRAMINE HYDROCHLORIDE
     Dosage: 50 MG, UNK
     Route: 048
  10. DIAZEPAM. [Concomitant]
     Active Substance: DIAZEPAM
     Dosage: 120 MG, UNK
     Route: 065
  11. OXYNEO [Concomitant]
     Active Substance: OXYCODONE
     Dosage: UNK, 1X/DAY
     Route: 065

REACTIONS (18)
  - Headache [Fatal]
  - Dehydration [Fatal]
  - Diarrhoea [Fatal]
  - Drug ineffective [Fatal]
  - Heart rate increased [Fatal]
  - Hypotension [Fatal]
  - Completed suicide [Fatal]
  - Off label use [Fatal]
  - Paraesthesia [Fatal]
  - Infusion related reaction [Fatal]
  - Pain [Fatal]
  - Blood pressure decreased [Fatal]
  - Rheumatoid arthritis [Fatal]
  - Chest pain [Fatal]
  - Anxiety [Fatal]
  - Fibromyalgia [Fatal]
  - Rash [Fatal]
  - Vomiting [Fatal]
